FAERS Safety Report 20060949 (Version 1)
Quarter: 2021Q4

REPORT INFORMATION
  Report Type: Report from Study
  Country: US (occurrence: US)
  Receive Date: 20211112
  Receipt Date: 20211112
  Transmission Date: 20220303
  Serious: Yes (Death)
  Sender: FDA-Public Use
  Company Number: US-NOVARTISPH-NVSC2021US258500

PATIENT
  Sex: Male
  Weight: 65.77 kg

DRUGS (1)
  1. ENTRESTO [Suspect]
     Active Substance: SACUBITRIL\VALSARTAN
     Indication: Product used for unknown indication
     Dosage: 24.26 MG, QD
     Route: 048
     Dates: start: 20180105

REACTIONS (2)
  - Cardiac failure [Fatal]
  - COVID-19 [Fatal]
